FAERS Safety Report 19932269 (Version 1)
Quarter: 2021Q4

REPORT INFORMATION
  Report Type: Spontaneous
  Country: US (occurrence: US)
  Receive Date: 20211007
  Receipt Date: 20211007
  Transmission Date: 20220303
  Serious: Yes (Life-Threatening)
  Sender: FDA-Public Use
  Company Number: None

PATIENT
  Age: 78 Year
  Sex: Male
  Weight: 122.2 kg

DRUGS (2)
  1. TOCILIZUMAB [Suspect]
     Active Substance: TOCILIZUMAB
     Indication: COVID-19 pneumonia
     Dosage: ?          OTHER FREQUENCY:ONCE;
     Route: 042
     Dates: start: 20210928, end: 20210928
  2. DEXAMETHASONE [Concomitant]
     Active Substance: DEXAMETHASONE
     Dates: start: 20210925, end: 20211004

REACTIONS (7)
  - Pyrexia [None]
  - Beta haemolytic streptococcal infection [None]
  - Renal impairment [None]
  - Oxygen saturation decreased [None]
  - Respiratory disorder [None]
  - Condition aggravated [None]
  - White blood cell count increased [None]

NARRATIVE: CASE EVENT DATE: 20211005
